FAERS Safety Report 9948946 (Version 2)
Quarter: 2014Q1

REPORT INFORMATION
  Report Type: Spontaneous
  Country: PE (occurrence: PE)
  Receive Date: 20140304
  Receipt Date: 20140310
  Transmission Date: 20141002
  Serious: Yes (Death, Other)
  Sender: FDA-Public Use
  Company Number: PE-ROCHE-1359309

PATIENT
  Sex: Male

DRUGS (4)
  1. LUCENTIS [Suspect]
     Indication: DIABETIC RETINAL OEDEMA
     Dosage: IN RIGHT EYE AND IN THE LEFT EYE
     Route: 050
     Dates: start: 201309
  2. LUCENTIS [Suspect]
     Dosage: IN RIGHT EYE AND IN THE LEFT EYE
     Route: 065
     Dates: start: 201310
  3. LUCENTIS [Suspect]
     Dosage: IN RIGHT EYE
     Route: 065
     Dates: start: 201311
  4. LUCENTIS [Suspect]
     Dosage: IN RIGHT EYE
     Route: 065
     Dates: start: 20140106

REACTIONS (3)
  - Myocardial infarction [Fatal]
  - Multi-organ failure [Unknown]
  - Sepsis [Unknown]
